FAERS Safety Report 24142457 (Version 2)
Quarter: 2024Q3

REPORT INFORMATION
  Report Type: Spontaneous
  Country: TR (occurrence: TR)
  Receive Date: 20240726
  Receipt Date: 20240805
  Transmission Date: 20241017
  Serious: Yes (Life-Threatening, Other)
  Sender: SANDOZ
  Company Number: TR-SANDOZ-SDZ2024TR064824

PATIENT
  Age: 35 Year
  Sex: Female
  Weight: 75 kg

DRUGS (1)
  1. ACYCLOVIR [Suspect]
     Active Substance: ACYCLOVIR
     Indication: Herpes ophthalmic
     Dosage: 800 MG, 5 TIMES A DAY, ONCE A DAY LATER, HALF A TABLET ONCE A DAY IN CASE OF SIDE EFFECTS
     Route: 048
     Dates: start: 20240613, end: 20240713

REACTIONS (11)
  - Herpes ophthalmic [Not Recovered/Not Resolved]
  - Pain [Not Recovered/Not Resolved]
  - Gait disturbance [Unknown]
  - Polymenorrhoea [Not Recovered/Not Resolved]
  - Oedema [Not Recovered/Not Resolved]
  - Myalgia [Not Recovered/Not Resolved]
  - Abdominal distension [Not Recovered/Not Resolved]
  - Burning sensation [Unknown]
  - Emotional disorder [Not Recovered/Not Resolved]
  - Alopecia [Not Recovered/Not Resolved]
  - Tremor [Not Recovered/Not Resolved]

NARRATIVE: CASE EVENT DATE: 20240617
